FAERS Safety Report 5917207-4 (Version None)
Quarter: 2008Q4

REPORT INFORMATION
  Report Type: 
  Country: None (occurrence: None)
  Receive Date: 20081014
  Receipt Date: 20081010
  Transmission Date: 20090506
  Serious: Yes (Death)
  Sender: FDA-Public Use
  Company Number: US-BRISTOL-MYERS SQUIBB COMPANY-14344840

PATIENT
  Age: 77 Year
  Sex: Male

DRUGS (5)
  1. SINEMET [Suspect]
     Indication: PARKINSON'S DISEASE
     Dosage: 1 DF = 25/100 UNITS NOT SPECIFIED
     Route: 048
     Dates: start: 20030101
  2. LYRICA [Concomitant]
  3. CLONAZEPAM [Concomitant]
  4. CYMBALTA [Concomitant]
     Dosage: 1 DF= 90 UNITS NOT SPECIFIED
  5. REQUIP [Concomitant]

REACTIONS (1)
  - DEATH [None]
